FAERS Safety Report 15495027 (Version 2)
Quarter: 2018Q4

REPORT INFORMATION
  Report Type: Spontaneous
  Country: DK (occurrence: DK)
  Receive Date: 20181012
  Receipt Date: 20181116
  Transmission Date: 20190205
  Serious: Yes (Life-Threatening, Hospitalization, Other)
  Sender: FDA-Public Use
  Company Number: DK-GLAXOSMITHKLINE-DK2016200437

PATIENT
  Age: 42 Year
  Sex: Female

DRUGS (2)
  1. DICLOFENAC (DICLOFENAC SODIUM) [Suspect]
     Active Substance: DICLOFENAC SODIUM
     Indication: PAIN
     Dosage: 100 MG, PRN (2 X50 MG/DAY)
     Route: 048
  2. IBUPROFEN. [Suspect]
     Active Substance: IBUPROFEN
     Indication: PAIN
     Dosage: 400 MG, PRN (1 X 400 MG/DAY)
     Route: 048

REACTIONS (2)
  - Gastrointestinal haemorrhage [Unknown]
  - Product prescribing error [Unknown]
